FAERS Safety Report 25585873 (Version 1)
Quarter: 2025Q3

REPORT INFORMATION
  Report Type: Spontaneous
  Country: US (occurrence: US)
  Receive Date: 20250721
  Receipt Date: 20250721
  Transmission Date: 20251021
  Serious: Yes (Other)
  Sender: MYLAN
  Company Number: US-MYLANLABS-2025M1060198

PATIENT
  Age: 44 Year
  Sex: Male

DRUGS (16)
  1. FENTANYL [Suspect]
     Active Substance: FENTANYL
     Indication: Product used for unknown indication
  2. FENTANYL [Suspect]
     Active Substance: FENTANYL
     Route: 065
  3. FENTANYL [Suspect]
     Active Substance: FENTANYL
     Route: 065
  4. FENTANYL [Suspect]
     Active Substance: FENTANYL
  5. ALCOHOL [Suspect]
     Active Substance: ALCOHOL
     Indication: Product used for unknown indication
  6. ALCOHOL [Suspect]
     Active Substance: ALCOHOL
     Route: 065
  7. ALCOHOL [Suspect]
     Active Substance: ALCOHOL
     Route: 065
  8. ALCOHOL [Suspect]
     Active Substance: ALCOHOL
  9. HYDROCODONE [Suspect]
     Active Substance: HYDROCODONE
     Indication: Product used for unknown indication
  10. HYDROCODONE [Suspect]
     Active Substance: HYDROCODONE
     Route: 065
  11. HYDROCODONE [Suspect]
     Active Substance: HYDROCODONE
     Route: 065
  12. HYDROCODONE [Suspect]
     Active Substance: HYDROCODONE
  13. OXYCODONE [Suspect]
     Active Substance: OXYCODONE
     Indication: Product used for unknown indication
  14. OXYCODONE [Suspect]
     Active Substance: OXYCODONE
     Route: 065
  15. OXYCODONE [Suspect]
     Active Substance: OXYCODONE
     Route: 065
  16. OXYCODONE [Suspect]
     Active Substance: OXYCODONE

REACTIONS (1)
  - Drug abuse [Unknown]
